FAERS Safety Report 7825898-6 (Version None)
Quarter: 2011Q4

REPORT INFORMATION
  Report Type: 
  Country: None (occurrence: None)
  Receive Date: 20111019
  Receipt Date: 20111005
  Transmission Date: 20120403
  Serious: Yes (Life-Threatening, Hospitalization)
  Sender: FDA-Public Use
  Company Number: FR-ROCHE-1002563

PATIENT
  Age: 52 Year
  Sex: Male

DRUGS (16)
  1. NEORAL [Concomitant]
     Dates: end: 20110831
  2. NICARDIPINE HCL [Concomitant]
  3. OMEPRAZOLE [Suspect]
     Indication: PRODUCT USED FOR UNKNOWN INDICATION
     Route: 048
     Dates: end: 20110826
  4. ATORVASTATIN CALCIUM [Suspect]
     Indication: PRODUCT USED FOR UNKNOWN INDICATION
     Route: 048
     Dates: start: 20110817, end: 20110823
  5. PREDNISONE [Concomitant]
  6. PREDNISONE [Concomitant]
  7. MYCOPHENOLATE MOFETIL (CELLCEPT) [Concomitant]
  8. ACETAMINOPHEN [Concomitant]
  9. VALGANCICLOVIR [Suspect]
     Indication: PRODUCT USED FOR UNKNOWN INDICATION
     Route: 048
     Dates: start: 20110820, end: 20110831
  10. BACTRIM [Suspect]
     Indication: PRODUCT USED FOR UNKNOWN INDICATION
     Route: 048
     Dates: start: 20110820, end: 20110831
  11. FUNGIZONE [Concomitant]
  12. NEORAL [Concomitant]
     Dates: start: 20110914
  13. RAMIPRIL [Suspect]
     Indication: PRODUCT USED FOR UNKNOWN INDICATION
     Route: 048
     Dates: end: 20110826
  14. NEORAL [Concomitant]
     Dates: start: 20110831, end: 20110914
  15. LOVENOX [Concomitant]
  16. NOVORAPID [Concomitant]
     Dosage: INDICATION: DYSGLYCEMIA

REACTIONS (1)
  - HEPATITIS [None]
